FAERS Safety Report 8394132-3 (Version None)
Quarter: 2012Q2

REPORT INFORMATION
  Report Type: 
  Country: None (occurrence: None)
  Receive Date: 20120530
  Receipt Date: 20120525
  Transmission Date: 20120825
  Serious: Yes (Other)
  Sender: FDA-Public Use
  Company Number: US-JNJFOC-20120517344

PATIENT

DRUGS (7)
  1. RADIATION THERAPY NOS [Concomitant]
     Indication: BREAST CANCER
     Route: 065
  2. HORMONAL TREATMENT NOS [Concomitant]
     Indication: BREAST CANCER
     Route: 065
  3. DOXORUBICIN HCL [Suspect]
     Indication: BREAST CANCER
     Dosage: EVERY 14 DAYS FOR 4 CYCLES IN ARM A
     Route: 042
  4. BEVACIZUMAB [Suspect]
     Indication: BREAST CANCER
     Dosage: 14 DAYS, 4 CYCLES (1-4, 5-8), 14 DAYS, 18 CYCLES IN ARM A (9-26)
     Route: 042
  5. PACLITAXEL [Suspect]
     Indication: BREAST CANCER
     Dosage: EVERY 14 DAYS FOR 4 CYCLES IN ARM A CYCLE 5-8
     Route: 065
  6. BEVACIZUMAB [Suspect]
     Dosage: EVERY 14 DAYS FOR 18 CYCLES (CYCLE 9-26 IN ARM A AND CYCLE 9-30 IN ARM B)
     Route: 042
  7. CYCLOPHOSPHAMIDE [Suspect]
     Indication: BREAST CANCER
     Dosage: EVERY 14 DAYS FOR 4 CYCLES IN ARM A
     Route: 065

REACTIONS (1)
  - ASPARTATE AMINOTRANSFERASE INCREASED [None]
